FAERS Safety Report 4891150-4 (Version None)
Quarter: 2006Q1

REPORT INFORMATION
  Report Type: 
  Country: None (occurrence: None)
  Receive Date: 20060125
  Receipt Date: 20051005
  Transmission Date: 20060701
  Serious: Yes (Death, Hospitalization)
  Sender: FDA-Public Use
  Company Number: US-MERCK-0510USA03366

PATIENT
  Age: 79 Year
  Sex: Female
  Weight: 41 kg

DRUGS (7)
  1. VIOXX [Suspect]
     Indication: RHEUMATOID ARTHRITIS
     Route: 048
     Dates: start: 20000101, end: 20020101
  2. MONOPRIL [Concomitant]
     Route: 065
  3. PRAVACHOL [Concomitant]
     Route: 065
  4. PREDNISONE [Concomitant]
     Route: 065
  5. LIPITOR [Concomitant]
     Route: 065
  6. VASOTEC [Concomitant]
     Route: 065
  7. TYLENOL (CAPLET) [Concomitant]
     Route: 065

REACTIONS (11)
  - CARDIAC FAILURE CONGESTIVE [None]
  - CEREBELLAR HAEMORRHAGE [None]
  - CEREBROVASCULAR ACCIDENT [None]
  - INFLUENZA [None]
  - LABYRINTHITIS [None]
  - NAUSEA [None]
  - NECK PAIN [None]
  - PNEUMONIA ASPIRATION [None]
  - PUBIC RAMI FRACTURE [None]
  - TRANSIENT ISCHAEMIC ATTACK [None]
  - VERTIGO [None]
